FAERS Safety Report 19652949 (Version 2)
Quarter: 2021Q3

REPORT INFORMATION
  Report Type: Spontaneous
  Country: US (occurrence: US)
  Receive Date: 20210803
  Receipt Date: 20210906
  Transmission Date: 20211014
  Serious: No
  Sender: FDA-Public Use
  Company Number: US-JNJFOC-20210755060

PATIENT
  Age: 69 Year
  Sex: Male
  Weight: 90.8 kg

DRUGS (1)
  1. TREMFYA [Suspect]
     Active Substance: GUSELKUMAB
     Indication: PSORIATIC ARTHROPATHY
     Route: 058
     Dates: start: 202106

REACTIONS (2)
  - Drug delivery system malfunction [Unknown]
  - Product dose omission issue [Unknown]

NARRATIVE: CASE EVENT DATE: 20210724
